FAERS Safety Report 6394403-6 (Version None)
Quarter: 2009Q4

REPORT INFORMATION
  Report Type: 
  Country: None (occurrence: None)
  Receive Date: 20091006
  Receipt Date: 20090921
  Transmission Date: 20100525
  Serious: Yes (Other)
  Sender: FDA-Public Use
  Company Number: GB-DEXPHARM-20091569

PATIENT

DRUGS (1)
  1. ARROGARDBLUE ACTIVE SUBSTANCES: CHLORHEXIDINE [Suspect]
     Indication: CENTRAL VENOUS CATHETERISATION
     Dosage: INTRAVENOUS (NOT OTHERWISE SPECIFIED)
     Route: 042

REACTIONS (1)
  - ANAPHYLACTIC REACTION [None]
